FAERS Safety Report 21146852 (Version 1)
Quarter: 2022Q3

REPORT INFORMATION
  Report Type: Spontaneous
  Country: US (occurrence: None)
  Receive Date: 20220728
  Receipt Date: 20220728
  Transmission Date: 20221027
  Serious: Yes (Disabling, Other)
  Sender: FDA-Public Use
  Company Number: None

PATIENT
  Age: 38 Year
  Sex: Female
  Weight: 115.65 kg

DRUGS (16)
  1. EVUSHELD [Suspect]
     Active Substance: CILGAVIMAB\TIXAGEVIMAB
     Indication: COVID-19 prophylaxis
     Dates: start: 20220719, end: 20220719
  2. Chloquine phosphate [Concomitant]
  3. LEXAPRO [Concomitant]
     Active Substance: ESCITALOPRAM OXALATE
  4. PRAZOSIN [Concomitant]
     Active Substance: PRAZOSIN
  5. ENBREL [Concomitant]
     Active Substance: ETANERCEPT
  6. AIMOVIG [Concomitant]
     Active Substance: ERENUMAB-AOOE
  7. TOPAMAX [Concomitant]
     Active Substance: TOPIRAMATE
  8. PROPRANOLOL HYDROCHLORIDE [Concomitant]
     Active Substance: PROPRANOLOL HYDROCHLORIDE
  9. ferrous gluc [Concomitant]
  10. ZIPRASIDONE [Concomitant]
     Active Substance: ZIPRASIDONE
  11. ZIPRASIDONE [Concomitant]
     Active Substance: ZIPRASIDONE
  12. VALACYCLOVIR [Concomitant]
     Active Substance: VALACYCLOVIR HYDROCHLORIDE
  13. Bariatric multi vitamin [Concomitant]
  14. CALCIUM CITRATE [Concomitant]
     Active Substance: CALCIUM CITRATE
  15. BIOTIN [Concomitant]
     Active Substance: BIOTIN
  16. VITAMIN B12 [Concomitant]
     Active Substance: CYANOCOBALAMIN

REACTIONS (2)
  - Migraine [None]
  - Vomiting [None]

NARRATIVE: CASE EVENT DATE: 20220721
